FAERS Safety Report 10886570 (Version 1)
Quarter: 2015Q1

REPORT INFORMATION
  Report Type: Spontaneous
  Country: US (occurrence: US)
  Receive Date: 20150304
  Receipt Date: 20150304
  Transmission Date: 20150721
  Serious: No
  Sender: FDA-Public Use
  Company Number: US-GLAXOSMITHKLINE-US2015GSK027960

PATIENT
  Age: 73 Year
  Sex: Male

DRUGS (10)
  1. PREDNISONE. [Concomitant]
     Active Substance: PREDNISONE
  2. ZOFRAN [Suspect]
     Active Substance: ONDANSETRON HYDROCHLORIDE
     Indication: PRODUCT USED FOR UNKNOWN INDICATION
     Dosage: UNK, U
     Route: 065
  3. LORTAB (ACETAMINOPHEN + HYDROCODONE) [Concomitant]
  4. ASPIRIN. [Concomitant]
     Active Substance: ASPIRIN
  5. XTANDI [Suspect]
     Active Substance: ENZALUTAMIDE
     Indication: PRODUCT USED FOR UNKNOWN INDICATION
     Dosage: 160 MG, QD
     Route: 065
  6. ZOCOR [Concomitant]
     Active Substance: SIMVASTATIN
  7. LISINOPRIL. [Concomitant]
     Active Substance: LISINOPRIL
  8. TOPROL XL [Concomitant]
     Active Substance: METOPROLOL SUCCINATE
  9. DEXAMETHASONE. [Concomitant]
     Active Substance: DEXAMETHASONE
  10. CLARITIN (GLICLAZIDE) [Concomitant]
     Active Substance: GLICLAZIDE

REACTIONS (1)
  - Drug hypersensitivity [Recovered/Resolved]

NARRATIVE: CASE EVENT DATE: 20140422
